FAERS Safety Report 8959160 (Version 1)
Quarter: 2012Q4

REPORT INFORMATION
  Report Type: 
  Country: US (occurrence: US)
  Receive Date: 20121211
  Receipt Date: 20121211
  Transmission Date: 20130627
  Serious: No
  Sender: FDA-Public Use
  Company Number: US-VERTEX PHARMACEUTICAL INC.-2012-020394

PATIENT
  Age: 37 Year
  Sex: Male

DRUGS (3)
  1. INCIVEK [Suspect]
     Indication: HEPATITIS C
     Dosage: 740 mg, tid
     Dates: start: 20120714, end: 20120827
  2. RIBASPHERE [Concomitant]
     Dosage: 200 mg, qd
     Dates: start: 20120714, end: 20120827
  3. PEGINTRON                          /01543001/ [Concomitant]
     Dosage: 120 mcg
     Dates: start: 20120714, end: 20120827

REACTIONS (1)
  - Drug ineffective [Unknown]
